FAERS Safety Report 8966675 (Version 2)
Quarter: 2012Q4

REPORT INFORMATION
  Report Type: 
  Country: JP (occurrence: JP)
  Receive Date: 20121217
  Receipt Date: 20121227
  Transmission Date: 20130627
  Serious: Yes (Death, Other)
  Sender: FDA-Public Use
  Company Number: JP-CELGENEUS-087-21880-12120479

PATIENT
  Age: 39 Year
  Sex: Male

DRUGS (5)
  1. REVLIMID [Suspect]
     Indication: POEMS SYNDROME
     Dosage: 15 Milligram
     Route: 048
     Dates: start: 201106
  2. UNKNOWNDRUG [Suspect]
     Indication: POEMS SYNDROME
     Route: 048
  3. DEXAMETHASONE [Concomitant]
     Indication: LYMPHADENOPATHY
     Route: 048
  4. RITUXIMAB [Concomitant]
     Indication: LYMPHADENOPATHY
     Route: 065
  5. CYCLOPHOSPHAMIDE [Concomitant]
     Indication: LYMPHADENOPATHY
     Route: 065

REACTIONS (7)
  - Death [Fatal]
  - Delirium [Unknown]
  - Pleural effusion [Unknown]
  - Pancytopenia [Unknown]
  - Sepsis [Unknown]
  - Pyrexia [Unknown]
  - Diffuse large B-cell lymphoma [Unknown]
